FAERS Safety Report 24631201 (Version 1)
Quarter: 2024Q4

REPORT INFORMATION
  Report Type: Spontaneous
  Country: US (occurrence: None)
  Receive Date: 20241117
  Receipt Date: 20241117
  Transmission Date: 20250114
  Serious: Yes (Disabling)
  Sender: Public
  Company Number: None

PATIENT
  Age: 39 Year
  Sex: Male
  Weight: 78.75 kg

DRUGS (1)
  1. SILODOSIN [Suspect]
     Active Substance: SILODOSIN
     Indication: Pollakiuria
     Dosage: OTHER QUANTITY : 180 CAPSULE(S);?FREQUENCY : TWICE A DAY;?
     Route: 048

REACTIONS (9)
  - Erectile dysfunction [None]
  - Sexual dysfunction [None]
  - Genital hypoaesthesia [None]
  - Anorgasmia [None]
  - Erectile dysfunction [None]
  - Male orgasmic disorder [None]
  - Pharyngeal swelling [None]
  - Throat tightness [None]
  - Headache [None]

NARRATIVE: CASE EVENT DATE: 20221222
